FAERS Safety Report 13463822 (Version 1)
Quarter: 2017Q2

REPORT INFORMATION
  Report Type: Spontaneous
  Country: US (occurrence: US)
  Receive Date: 20170420
  Receipt Date: 20170420
  Transmission Date: 20170830
  Serious: Yes (Other)
  Sender: FDA-Public Use
  Company Number: US-ROCHE-649310

PATIENT
  Age: 21 Year
  Sex: Female
  Weight: 113.4 kg

DRUGS (3)
  1. ACCUTANE [Suspect]
     Active Substance: ISOTRETINOIN
     Indication: ACNE
     Route: 065
  2. ACCUTANE [Suspect]
     Active Substance: ISOTRETINOIN
     Route: 065
     Dates: start: 19991209, end: 200001
  3. ACCUTANE [Suspect]
     Active Substance: ISOTRETINOIN
     Route: 065

REACTIONS (9)
  - Xerosis [Unknown]
  - Hirsutism [Unknown]
  - Depression [Unknown]
  - Dyspnoea [Unknown]
  - Crohn^s disease [Unknown]
  - Weight decreased [Unknown]
  - Skin hypopigmentation [Unknown]
  - Inflammatory bowel disease [Unknown]
  - Colitis ulcerative [Unknown]

NARRATIVE: CASE EVENT DATE: 19991020
